FAERS Safety Report 15201929 (Version 1)
Quarter: 2018Q3

REPORT INFORMATION
  Report Type: Spontaneous
  Country: DZ (occurrence: DZ)
  Receive Date: 20180726
  Receipt Date: 20180726
  Transmission Date: 20181010
  Serious: Yes (Other)
  Sender: FDA-Public Use
  Company Number: PHHY2018DZ053095

PATIENT
  Age: 57 Year
  Sex: Female

DRUGS (2)
  1. TASIGNA [Suspect]
     Active Substance: NILOTINIB
     Dosage: 400 MG, UNK
     Route: 065
  2. TASIGNA [Suspect]
     Active Substance: NILOTINIB
     Indication: CHRONIC MYELOID LEUKAEMIA
     Dosage: 800 MG, BID
     Route: 065
     Dates: start: 201603

REACTIONS (7)
  - Pancytopenia [Unknown]
  - Tonsillitis [Unknown]
  - Laryngeal neoplasm [Unknown]
  - Dysphonia [Unknown]
  - Dysphagia [Unknown]
  - Pain [Unknown]
  - Candida infection [Unknown]

NARRATIVE: CASE EVENT DATE: 201806
